FAERS Safety Report 15110613 (Version 5)
Quarter: 2018Q4

REPORT INFORMATION
  Report Type: Spontaneous
  Country: US (occurrence: US)
  Receive Date: 20180705
  Receipt Date: 20181226
  Transmission Date: 20190204
  Serious: Yes (Hospitalization, Other)
  Sender: FDA-Public Use
  Company Number: US-SAOL THERAPEUTICS-2018SAO00872

PATIENT
  Age: 41 Year
  Sex: Female
  Weight: 81.63 kg

DRUGS (3)
  1. LIORESAL [Suspect]
     Active Substance: BACLOFEN
     Indication: SPINAL CORD INJURY
     Dosage: 480.2 ?G, \DAY
  2. LIORESAL [Suspect]
     Active Substance: BACLOFEN
     Indication: MUSCLE SPASTICITY
     Dosage: 444 ?G, \DAY
     Route: 037
  3. LIORESAL [Suspect]
     Active Substance: BACLOFEN
     Dosage: 300 ?G, \DAY

REACTIONS (9)
  - Device damage [Unknown]
  - Device dislocation [Recovered/Resolved]
  - Implant site swelling [Unknown]
  - Underdose [Recovered/Resolved]
  - Excessive granulation tissue [Recovered/Resolved]
  - Pain in extremity [Unknown]
  - Device kink [Recovered/Resolved]
  - Complication associated with device [Unknown]
  - Drug withdrawal syndrome [Unknown]

NARRATIVE: CASE EVENT DATE: 20180615
